FAERS Safety Report 18985547 (Version 2)
Quarter: 2021Q1

REPORT INFORMATION
  Report Type: Spontaneous
  Country: US (occurrence: US)
  Receive Date: 20210309
  Receipt Date: 20210311
  Transmission Date: 20210420
  Serious: Yes (Hospitalization, Other)
  Sender: FDA-Public Use
  Company Number: US-ABBVIE-21K-163-3798117-00

PATIENT
  Age: 63 Year
  Sex: Female
  Weight: 74 kg

DRUGS (7)
  1. GABAPENTIN. [Concomitant]
     Active Substance: GABAPENTIN
     Indication: ARTHRALGIA
  2. BALSALAZIDE DISODIUM. [Concomitant]
     Active Substance: BALSALAZIDE DISODIUM
     Indication: COLITIS ULCERATIVE
  3. SYNTHROID [Suspect]
     Active Substance: LEVOTHYROXINE SODIUM
     Indication: HYPOTHYROIDISM
     Route: 048
     Dates: start: 202005
  4. HUMIRA [Suspect]
     Active Substance: ADALIMUMAB
     Indication: COLITIS ULCERATIVE
     Route: 058
     Dates: start: 202101
  5. LIPITOR [Concomitant]
     Active Substance: ATORVASTATIN CALCIUM
     Indication: BLOOD CHOLESTEROL INCREASED
  6. HYDRALAZINE [Concomitant]
     Active Substance: HYDRALAZINE HYDROCHLORIDE
     Indication: HYPERTENSION
  7. ZOLOFT [Concomitant]
     Active Substance: SERTRALINE HYDROCHLORIDE
     Indication: DEPRESSION

REACTIONS (11)
  - Chest pain [Recovering/Resolving]
  - Colitis ulcerative [Not Recovered/Not Resolved]
  - Haemorrhoids [Recovering/Resolving]
  - Fall [Recovering/Resolving]
  - Thrombosis [Recovering/Resolving]
  - Hand fracture [Not Recovered/Not Resolved]
  - Wrong technique in product usage process [Unknown]
  - Rectal haemorrhage [Recovered/Resolved]
  - Pulmonary thrombosis [Recovering/Resolving]
  - Confusional state [Recovering/Resolving]
  - Abdominal rigidity [Recovering/Resolving]

NARRATIVE: CASE EVENT DATE: 202008
